FAERS Safety Report 10151836 (Version 1)
Quarter: 2014Q2

REPORT INFORMATION
  Report Type: Spontaneous
  Country: CA (occurrence: CA)
  Receive Date: 20140505
  Receipt Date: 20140505
  Transmission Date: 20141212
  Serious: Yes (Hospitalization, Other)
  Sender: FDA-Public Use
  Company Number: CA-ACCORD-023455

PATIENT
  Age: 7 Month
  Sex: Female
  Weight: 6.5 kg

DRUGS (2)
  1. BUPROPION/BUPROPION HYDROCHLORIDE [Suspect]
     Indication: DEPRESSION
     Route: 063
  2. ESCITALOPRAM [Interacting]
     Indication: DEPRESSION
     Route: 063

REACTIONS (9)
  - Exposure during breast feeding [Unknown]
  - Drug interaction [Unknown]
  - Sleep disorder [Unknown]
  - Unresponsive to stimuli [Recovered/Resolved]
  - Somnolence [Recovered/Resolved]
  - Vomiting [Recovered/Resolved]
  - Hypertonia [Recovered/Resolved]
  - Cyanosis [Recovered/Resolved]
  - Seizure like phenomena [Recovered/Resolved]
